FAERS Safety Report 7883386-5 (Version None)
Quarter: 2011Q4

REPORT INFORMATION
  Report Type: 
  Country: None (occurrence: None)
  Receive Date: 20111031
  Receipt Date: 20111021
  Transmission Date: 20120403
  Serious: Yes (Disabling, Other)
  Sender: FDA-Public Use
  Company Number: 1000024879

PATIENT
  Age: 72 Year
  Sex: Female
  Weight: 58.1 kg

DRUGS (10)
  1. ZANTAC [Suspect]
     Indication: BURN OESOPHAGEAL
     Dosage: 600 MG (600 MG, 1 IN 1 D)
  2. LISINOPRIL [Suspect]
     Indication: HYPERTENSION
  3. CELEXA [Suspect]
     Indication: DRUG DEPENDENCE
     Dosage: (10 MG)
  4. BENICAR [Suspect]
     Indication: HYPERTENSION
     Dosage: 40 MG (40 MG, 1 IN 1 D)
     Dates: start: 20100101
  5. XANAX [Suspect]
     Indication: ANXIETY
     Dosage: 1.25 MG (1.25 MG, 1 IN 1 D), ORAL 0.75 MG (0.75 MG, 1 IN 1 D), ORAL
     Route: 048
     Dates: start: 20100608
  6. METOPROLOL TARTRATE [Suspect]
     Indication: HYPERTENSION
     Dosage: 40 MG (20 MG, 2 IN 1 D)
     Dates: start: 20100101
  7. CELEXA [Suspect]
     Indication: DRUG DEPENDENCE
     Dosage: (120 MG)
  8. NORVASC [Suspect]
     Indication: HYPERTENSION
     Dosage: 7.5 MG (BID (5MG IN MORNING + 2.5MG IN EVENING)), ORAL
     Route: 048
     Dates: start: 20100101
  9. PLAVIX [Suspect]
     Indication: THROMBOSIS
  10. CATAPRES [Suspect]
     Indication: HYPERTENSION
     Dosage: (1 IN 1 WK)
     Dates: start: 20100101

REACTIONS (11)
  - BLOOD PRESSURE INCREASED [None]
  - TONGUE DRY [None]
  - OFF LABEL USE [None]
  - HAIR TEXTURE ABNORMAL [None]
  - BURN OESOPHAGEAL [None]
  - DECREASED APPETITE [None]
  - DRY MOUTH [None]
  - DRUG DEPENDENCE [None]
  - GASTROINTESTINAL DISORDER [None]
  - WEIGHT DECREASED [None]
  - ANXIETY [None]
